FAERS Safety Report 13401050 (Version 2)
Quarter: 2019Q4

REPORT INFORMATION
  Report Type: Spontaneous
  Country: US (occurrence: US)
  Receive Date: 20170404
  Receipt Date: 20191018
  Transmission Date: 20200122
  Serious: Yes (Other)
  Sender: FDA-Public Use
  Company Number: US-PFIZER INC-2017144251

PATIENT
  Age: 63 Year
  Sex: Male

DRUGS (8)
  1. VIAGRA [Suspect]
     Active Substance: SILDENAFIL CITRATE
     Dosage: 100 MG, 2X/WEEK
     Route: 048
     Dates: start: 20090915, end: 20091015
  2. VIAGRA [Suspect]
     Active Substance: SILDENAFIL CITRATE
     Dosage: 100 MG, 2X/WEEK
     Route: 048
     Dates: start: 20100726, end: 20100825
  3. VIAGRA [Suspect]
     Active Substance: SILDENAFIL CITRATE
     Dosage: 100 MG, 2X/WEEK
     Route: 048
     Dates: start: 20100105, end: 20100204
  4. SUNSCREEN [Concomitant]
     Active Substance: HOMOSALATE\OCTINOXATE\OCTISALATE\OXYBENZONE\TITANIUM DIOXIDE
     Dosage: EVERY TIME GO OUTDOORS
     Dates: start: 1970
  5. VIAGRA [Suspect]
     Active Substance: SILDENAFIL CITRATE
     Dosage: 100 MG, 2X/WEEK
     Route: 048
     Dates: start: 20091016, end: 20100104
  6. VIAGRA [Suspect]
     Active Substance: SILDENAFIL CITRATE
     Dosage: 100 MG, 2X/WEEK
     Route: 048
     Dates: start: 20100910, end: 20120320
  7. VIAGRA [Suspect]
     Active Substance: SILDENAFIL CITRATE
     Indication: ERECTILE DYSFUNCTION
     Dosage: 50 MG, 2X/WEEK
     Route: 048
     Dates: start: 20050125, end: 20070405
  8. VIAGRA [Suspect]
     Active Substance: SILDENAFIL CITRATE
     Dosage: 100 MG, 2X/WEEK
     Route: 048
     Dates: start: 20100310, end: 20100624

REACTIONS (1)
  - Malignant melanoma [Unknown]

NARRATIVE: CASE EVENT DATE: 20090707
